FAERS Safety Report 24783352 (Version 1)
Quarter: 2024Q4

REPORT INFORMATION
  Report Type: Spontaneous
  Country: US (occurrence: US)
  Receive Date: 20241227
  Receipt Date: 20241227
  Transmission Date: 20250115
  Serious: Yes (Other)
  Sender: MYLAN
  Company Number: US-MYLANLABS-2024M1115926

PATIENT
  Age: 72 Year
  Sex: Female

DRUGS (3)
  1. LEUCOVORIN CALCIUM [Suspect]
     Active Substance: LEUCOVORIN CALCIUM
     Indication: Endometrial cancer
     Dosage: UNK, CYCLE; 7 CYCLE
     Route: 065
  2. OXALIPLATIN [Suspect]
     Active Substance: OXALIPLATIN
     Indication: Endometrial cancer
     Dosage: UNK, CYCLE; 7 CYCLE
     Route: 065
  3. FLUOROURACIL [Suspect]
     Active Substance: FLUOROURACIL
     Indication: Endometrial cancer
     Dosage: UNK UNK, CYCLE; 7 CYCLE
     Route: 065

REACTIONS (4)
  - Interstitial lung disease [Recovering/Resolving]
  - Hypoxia [Recovering/Resolving]
  - Fibrosis [Recovering/Resolving]
  - Lung disorder [Recovering/Resolving]
